FAERS Safety Report 8049782-0 (Version None)
Quarter: 2012Q1

REPORT INFORMATION
  Report Type: 
  Country: None (occurrence: None)
  Receive Date: 20120117
  Receipt Date: 20120111
  Transmission Date: 20120608
  Serious: No
  Sender: FDA-Public Use
  Company Number: US-B.I. PHARMACEUTICALS,INC./RIDGEFIELD-2011-BP-28956BP

PATIENT
  Sex: Female

DRUGS (7)
  1. HYDROCHLOROTHIAZIDE [Concomitant]
     Indication: HYPERTENSION
  2. IBUPROFEN (ADVIL) [Concomitant]
     Indication: INTERVERTEBRAL DISC PROTRUSION
  3. VENTOLIN [Concomitant]
     Indication: CHRONIC OBSTRUCTIVE PULMONARY DISEASE
  4. SPIRIVA [Suspect]
     Indication: CHRONIC OBSTRUCTIVE PULMONARY DISEASE
     Dosage: 18 MCG
     Route: 055
     Dates: start: 20100101
  5. ASPIRIN [Concomitant]
     Indication: CARDIOVASCULAR DISORDER
  6. PERCOCET [Concomitant]
     Indication: INTERVERTEBRAL DISC PROTRUSION
  7. POTASSIUM CHLORIDE [Concomitant]

REACTIONS (1)
  - DYSPNOEA [None]
